FAERS Safety Report 5614361-9 (Version None)
Quarter: 2008Q1

REPORT INFORMATION
  Report Type: 
  Country: None (occurrence: None)
  Receive Date: 20080205
  Receipt Date: 20080124
  Transmission Date: 20080703
  Serious: Yes (Other)
  Sender: FDA-Public Use
  Company Number: US-PFIZER INC-2008008496

PATIENT
  Age: 77 Year
  Sex: Female
  Weight: 54 kg

DRUGS (5)
  1. NEURONTIN [Suspect]
     Indication: NEUROPATHY PERIPHERAL
     Dates: start: 20060101, end: 20060801
  2. MORPHINE [Suspect]
     Indication: ARTHRALGIA
  3. MORPHINE [Suspect]
     Indication: NEUROPATHY PERIPHERAL
  4. VITAMINS [Concomitant]
  5. INSULIN [Concomitant]

REACTIONS (5)
  - ABNORMAL BEHAVIOUR [None]
  - DELUSION [None]
  - DEPRESSION [None]
  - FEELING ABNORMAL [None]
  - HALLUCINATION [None]
